FAERS Safety Report 4710192-2 (Version None)
Quarter: 2005Q3

REPORT INFORMATION
  Report Type: 
  Country: None (occurrence: None)
  Receive Date: 20050709
  Receipt Date: 20050704
  Transmission Date: 20060218
  Serious: Yes (Life-Threatening)
  Sender: FDA-Public Use
  Company Number: DE-MERCK-0507DEU00031

PATIENT
  Sex: Female

DRUGS (2)
  1. AGGRASTAT [Suspect]
     Route: 042
     Dates: start: 20050701, end: 20050701
  2. HEPARIN [Concomitant]
     Route: 065

REACTIONS (2)
  - CEREBRAL HAEMORRHAGE [None]
  - THROMBOCYTOPENIA [None]
